FAERS Safety Report 15594986 (Version 3)
Quarter: 2019Q1

REPORT INFORMATION
  Report Type: Report from Study
  Country: JP (occurrence: JP)
  Receive Date: 20181106
  Receipt Date: 20190325
  Transmission Date: 20190417
  Serious: Yes (Hospitalization, Other)
  Sender: FDA-Public Use
  Company Number: JP-AMGEN-JPNCT2018155553

PATIENT
  Age: 83 Year
  Sex: Female

DRUGS (15)
  1. BONALON [Concomitant]
     Active Substance: ALENDRONATE SODIUM
     Indication: HYPERPARATHYROIDISM PRIMARY
     Dosage: 35 MILLIGRAM
     Route: 048
  2. HACHIMIJIOGAN [Concomitant]
     Active Substance: HERBALS
     Indication: OSTEOARTHRITIS
  3. TOKISHIGYAKUKAGOSHUYUSHOKYOTO [Concomitant]
     Indication: OSTEOARTHRITIS
     Dosage: 5 GRAM
     Route: 048
     Dates: start: 20150514, end: 20150618
  4. YOKUKANSANKACHIMPIHANGE [Concomitant]
     Indication: OSTEOARTHRITIS
     Dosage: 5 GRAM
     Route: 048
     Dates: start: 20150716, end: 20150812
  5. CINACALCET HCL [Suspect]
     Active Substance: CINACALCET HYDROCHLORIDE
     Dosage: 25 MILLIGRAM, TID
     Route: 048
     Dates: start: 20160311
  6. CINACALCET HCL [Suspect]
     Active Substance: CINACALCET HYDROCHLORIDE
     Indication: HYPERPARATHYROIDISM PRIMARY
     Dosage: 25 MILLIGRAM, BID
     Route: 048
     Dates: start: 20150410, end: 20160310
  7. TRAMCET [Concomitant]
     Active Substance: ACETAMINOPHEN\TRAMADOL
     Indication: OSTEOARTHRITIS
     Dosage: 4 DOSAGE FORM
     Route: 048
  8. HACHIMIJIOGAN [Concomitant]
     Active Substance: HERBALS
     Indication: OSTEOARTHRITIS
     Dosage: 5 GRAM
     Route: 048
     Dates: end: 20150513
  9. SEISHINRENSHIIN [Concomitant]
     Active Substance: HERBALS
     Indication: OSTEOARTHRITIS
     Dosage: 5 GRAM
     Route: 048
     Dates: start: 20150813, end: 20150909
  10. TOKISHIGYAKUKAGOSHUYUSHOKYOTO [Concomitant]
     Indication: OSTEOARTHRITIS
  11. HOCHUEKKITO [Concomitant]
     Active Substance: HERBALS
     Indication: OSTEOARTHRITIS
     Dosage: 5 GRAM
     Route: 048
     Dates: start: 20150618, end: 20150909
  12. TRAMCET [Concomitant]
     Active Substance: ACETAMINOPHEN\TRAMADOL
     Indication: OSTEOARTHRITIS
  13. NINJINTO [Concomitant]
     Indication: OSTEOARTHRITIS
     Dosage: 5 GRAM
     Route: 048
     Dates: end: 20150513
  14. LEXAPRO [Suspect]
     Active Substance: ESCITALOPRAM OXALATE
     Indication: OSTEOARTHRITIS
     Dosage: 5 MILLIGRAM
     Route: 048
     Dates: start: 20150910, end: 20151022
  15. SEISHINRENSHIIN [Concomitant]
     Active Substance: HERBALS
     Indication: OSTEOARTHRITIS

REACTIONS (4)
  - Hepatic function abnormal [Recovering/Resolving]
  - Dehydration [Recovered/Resolved]
  - Appendicitis perforated [Recovered/Resolved]
  - Renal impairment [Recovering/Resolving]

NARRATIVE: CASE EVENT DATE: 20151003
